FAERS Safety Report 24454346 (Version 2)
Quarter: 2024Q4

REPORT INFORMATION
  Report Type: Report from Study
  Country: US (occurrence: US)
  Receive Date: 20241017
  Receipt Date: 20241018
  Transmission Date: 20250114
  Serious: No
  Sender: ROCHE
  Company Number: US-ROCHE-3406121

PATIENT
  Age: 62 Year
  Sex: Female

DRUGS (34)
  1. RITUXAN [Suspect]
     Active Substance: RITUXIMAB
     Indication: Chronic inflammatory demyelinating polyradiculoneuropathy
     Route: 041
     Dates: start: 202310
  2. RITUXAN [Suspect]
     Active Substance: RITUXIMAB
     Indication: Demyelination
  3. RITUXAN [Suspect]
     Active Substance: RITUXIMAB
     Indication: Arrhythmia
  4. RITUXAN [Suspect]
     Active Substance: RITUXIMAB
     Indication: Postural orthostatic tachycardia syndrome
  5. TRUXIMA [Suspect]
     Active Substance: RITUXIMAB-ABBS
     Indication: Chronic inflammatory demyelinating polyradiculoneuropathy
     Route: 042
  6. KLONOPIN [Concomitant]
     Active Substance: CLONAZEPAM
     Route: 048
  7. ERGOCALCIFEROL [Concomitant]
     Active Substance: ERGOCALCIFEROL
     Dosage: TAKE 50,000 UNITS BY MOUTH (50000 UT)
     Route: 048
  8. NORMODYNE [Concomitant]
     Active Substance: LABETALOL HYDROCHLORIDE
     Dosage: EVERY NIGHT AT BEDTIME
     Route: 048
  9. NORVASC [Concomitant]
     Active Substance: AMLODIPINE BESYLATE
     Dosage: WHEN SYSTOLIC BLOOD PRESSURE ABOVE 160
     Route: 048
  10. PROPRANOLOL [Concomitant]
     Active Substance: PROPRANOLOL HYDROCHLORIDE
     Dosage: FOR MORE THAN 100 HR AND DBP
     Route: 048
  11. NYSTATIN [Concomitant]
     Active Substance: NYSTATIN
     Dosage: 100000 UNIT/ML, SWISH AND SPIT 5MLS BY MOUTH EVERY 6 HOURS AS NEEDED FOR STOMATITIS OR ORAL PAIN
  12. DEXAMETHASONE [Concomitant]
     Active Substance: DEXAMETHASONE
     Dosage: 0.5 MG/5ML
  13. DOXYCYCLINE HYCLATE [Concomitant]
     Active Substance: DOXYCYCLINE HYCLATE
     Route: 048
  14. LIBRAX [Concomitant]
     Active Substance: CHLORDIAZEPOXIDE HYDROCHLORIDE\CLIDINIUM BROMIDE
     Indication: Pain
     Dosage: 5-2.5 MG
     Route: 048
  15. LINACLOTIDE [Concomitant]
     Active Substance: LINACLOTIDE
     Route: 048
  16. FLOMAX CAPSULE [Concomitant]
     Route: 048
  17. REGLAN [Concomitant]
     Active Substance: METOCLOPRAMIDE HYDROCHLORIDE
     Route: 048
  18. PREDNISONE [Concomitant]
     Active Substance: PREDNISONE
     Dosage: FREQUENCY TEXT:DAILY
     Route: 048
  19. ZOFRAN [Concomitant]
     Active Substance: ONDANSETRON HYDROCHLORIDE
     Indication: Nausea
     Route: 048
  20. ZOFRAN [Concomitant]
     Active Substance: ONDANSETRON HYDROCHLORIDE
     Indication: Vomiting
  21. LYRICA [Concomitant]
     Active Substance: PREGABALIN
     Indication: Tinnitus
     Route: 048
  22. LYRICA [Concomitant]
     Active Substance: PREGABALIN
     Indication: Dizziness
  23. LACTASE [Concomitant]
     Active Substance: LACTASE
     Dosage: 9000 UNITS
     Route: 048
  24. METHYLPREDNISOLONE [Concomitant]
     Active Substance: METHYLPREDNISOLONE
     Route: 042
  25. EPINEPHRINE [Concomitant]
     Active Substance: EPINEPHRINE
     Indication: Hypersensitivity
     Dosage: INJECT 0.3 ML INTO THE MUSCLE AS NEEDED
  26. BENADRYL [Concomitant]
     Active Substance: DIPHENHYDRAMINE HYDROCHLORIDE
     Dosage: 50 MG/ML 1 ML INTRAVENOUS EVERY 8 HOURS AS NEEDED
     Route: 042
  27. SODIUM CHLORIDE [Concomitant]
     Active Substance: SODIUM CHLORIDE
     Dosage: 3,000 ML INTRAVENOUS AS DIRECTED, TOTAL OF 2 L DAILY  OF 0.9 NS IN AM AND PM. ADDITIONAL IL AS NEEDE
  28. ESTRADIOL [Concomitant]
     Active Substance: ESTRADIOL
     Dosage: POWDER APPLY TO SKIN. CREAM CUSTOM MADE FOR USE IN THE MORNING
  29. NEXIUM [Concomitant]
     Active Substance: ESOMEPRAZOLE MAGNESIUM
     Indication: Abdominal discomfort
     Dosage: CAPSULE DELAYED RELEASE
     Route: 048
  30. PROGESTERONE [Concomitant]
     Active Substance: PROGESTERONE
     Dosage: MISC NATURAL PRODUCTS PLACE 1 APPLICATION TOPICALLY ONCE PER DAY  1000 MG/60GM EX CREA
  31. CLONAZEPAM [Concomitant]
     Active Substance: CLONAZEPAM
     Indication: Anxiety
     Route: 048
  32. LINZESS [Concomitant]
     Active Substance: LINACLOTIDE
     Indication: Constipation
     Route: 048
  33. FIORICET [Concomitant]
     Active Substance: ACETAMINOPHEN\BUTALBITAL\CAFFEINE
     Indication: Pain
     Dosage: 325MG ACETAMINOPHEN/50MG BUTALBITAL/40MG CAFFEINE
     Route: 048
  34. GAMUNEX [Concomitant]
     Active Substance: HUMAN IMMUNOGLOBULIN G
     Route: 042

REACTIONS (7)
  - Off label use [Unknown]
  - Constipation [Unknown]
  - Gastrointestinal pain [Not Recovered/Not Resolved]
  - Pain [Not Recovered/Not Resolved]
  - Stomatitis [Recovered/Resolved]
  - White blood cell count decreased [Unknown]
  - Off label use [Unknown]

NARRATIVE: CASE EVENT DATE: 20231001
